FAERS Safety Report 6016042-9 (Version None)
Quarter: 2008Q4

REPORT INFORMATION
  Report Type: 
  Country: None (occurrence: None)
  Receive Date: 20081222
  Receipt Date: 20081210
  Transmission Date: 20090506
  Serious: Yes (Hospitalization, Other)
  Sender: FDA-Public Use
  Company Number: JP-PFIZER INC-2008156424

PATIENT

DRUGS (3)
  1. AMLODIPINE BESYLATE [Suspect]
     Dosage: UNK
  2. CARDENALIN [Suspect]
  3. BLOPRESS [Suspect]
     Dosage: UNK

REACTIONS (4)
  - OVERDOSE [None]
  - RENAL FAILURE [None]
  - RENAL VESSEL DISORDER [None]
  - SUICIDE ATTEMPT [None]
